FAERS Safety Report 9260024 (Version 2)
Quarter: 2013Q3

REPORT INFORMATION
  Report Type: Spontaneous
  Country: DE (occurrence: DE)
  Receive Date: 20130429
  Receipt Date: 20130807
  Transmission Date: 20140515
  Serious: Yes (Hospitalization)
  Sender: FDA-Public Use
  Company Number: DE-JNJFOC-20130414166

PATIENT
  Age: 27 Year
  Sex: Female
  Weight: 72.11 kg

DRUGS (4)
  1. XARELTO [Suspect]
     Indication: THROMBOSIS PROPHYLAXIS
     Route: 048
     Dates: start: 20130312, end: 20130314
  2. NUVARING [Concomitant]
     Indication: CONTRACEPTION
     Route: 065
  3. IBUPROFEN [Concomitant]
     Indication: PAIN
     Route: 065
  4. KEIMAX [Concomitant]
     Route: 065

REACTIONS (4)
  - Renal failure acute [Recovering/Resolving]
  - Secondary hypertension [Recovering/Resolving]
  - Oedema [Recovering/Resolving]
  - Back pain [Recovering/Resolving]
